FAERS Safety Report 17488705 (Version 2)
Quarter: 2020Q1

REPORT INFORMATION
  Report Type: Spontaneous
  Country: US (occurrence: US)
  Receive Date: 20200303
  Receipt Date: 20200305
  Transmission Date: 20200409
  Serious: Yes (Other)
  Sender: FDA-Public Use
  Company Number: US-PFIZER INC-2020092377

PATIENT
  Age: 10 Year
  Sex: Male
  Weight: 27.67 kg

DRUGS (3)
  1. CLARITINE [Concomitant]
     Active Substance: LORATADINE
     Dosage: UNK, AS NEEDED
  2. GENOTROPIN [Suspect]
     Active Substance: SOMATROPIN
     Dosage: 0.7 MG, DAILY
  3. MIRALAX [Concomitant]
     Active Substance: POLYETHYLENE GLYCOL 3350
     Dosage: UNK, AS NEEDED

REACTIONS (2)
  - Product dispensing error [Unknown]
  - Brain neoplasm malignant [Unknown]
